FAERS Safety Report 5935062-3 (Version None)
Quarter: 2008Q4

REPORT INFORMATION
  Report Type: 
  Country: None (occurrence: None)
  Receive Date: 20081028
  Receipt Date: 20081013
  Transmission Date: 20090506
  Serious: Yes (Life-Threatening)
  Sender: FDA-Public Use
  Company Number: 2008S1018581

PATIENT
  Age: 67 Year
  Sex: Female

DRUGS (3)
  1. ALENDRONIC ACID (ALENDRONIC ACID) [Suspect]
     Indication: OSTEOPOROSIS
     Dosage: 70 MG;WEEKLY;ORAL
     Route: 048
     Dates: start: 20080625
  2. ARIMIDEX [Suspect]
     Indication: BREAST CANCER
     Dosage: 1 MG;DAILY;ORAL
     Route: 048
     Dates: start: 20080609
  3. ADCAL-D3 (CON.) [Concomitant]

REACTIONS (1)
  - APLASTIC ANAEMIA [None]
